FAERS Safety Report 15979881 (Version 1)
Quarter: 2019Q1

REPORT INFORMATION
  Report Type: Spontaneous
  Country: US (occurrence: US)
  Receive Date: 20190218
  Receipt Date: 20190218
  Transmission Date: 20190418
  Serious: Yes (Hospitalization)
  Sender: FDA-Public Use
  Company Number: None

PATIENT
  Age: 54 Year
  Sex: Male
  Weight: 83.25 kg

DRUGS (1)
  1. LOSARTAN TABS 25MG [Suspect]
     Active Substance: LOSARTAN
     Indication: HYPERTENSION
     Dosage: ?          QUANTITY:1 TABLET(S);?
     Route: 048
     Dates: start: 20181109, end: 20190111

REACTIONS (4)
  - Dizziness [None]
  - Recalled product administered [None]
  - Loss of consciousness [None]
  - Hypoaesthesia [None]

NARRATIVE: CASE EVENT DATE: 20190107
